APPROVED DRUG PRODUCT: TOLMETIN SODIUM
Active Ingredient: TOLMETIN SODIUM
Strength: EQ 600MG BASE
Dosage Form/Route: TABLET;ORAL
Application: A074729 | Product #001
Applicant: COSETTE PHARMACEUTICALS INC
Approved: Feb 27, 1997 | RLD: No | RS: No | Type: DISCN